FAERS Safety Report 7433092-6 (Version None)
Quarter: 2011Q2

REPORT INFORMATION
  Report Type: 
  Country: None (occurrence: None)
  Receive Date: 20110422
  Receipt Date: 20110418
  Transmission Date: 20111010
  Serious: Yes (Other)
  Sender: FDA-Public Use
  Company Number: US-PFIZER INC-2011051444

PATIENT
  Sex: Female

DRUGS (2)
  1. PREMARIN [Suspect]
     Indication: POSTMENOPAUSE
     Dosage: 0.3 MG, UNK
     Route: 048
     Dates: start: 19750101, end: 20101101
  2. EVISTA [Suspect]
     Dosage: UNK

REACTIONS (7)
  - URTICARIA [None]
  - HERNIA [None]
  - HIRSUTISM [None]
  - PRURITUS GENERALISED [None]
  - RASH [None]
  - BENIGN BREAST NEOPLASM [None]
  - NIGHT SWEATS [None]
